FAERS Safety Report 12678536 (Version 2)
Quarter: 2016Q3

REPORT INFORMATION
  Report Type: Spontaneous
  Country: US (occurrence: US)
  Receive Date: 20160823
  Receipt Date: 20160830
  Transmission Date: 20161109
  Serious: Yes (Other)
  Sender: FDA-Public Use
  Company Number: US-PFIZER INC-2016396389

PATIENT
  Age: 60 Year
  Sex: Male
  Weight: 90.17 kg

DRUGS (11)
  1. MONTELUKAST [Concomitant]
     Active Substance: MONTELUKAST SODIUM
     Indication: HYPERSENSITIVITY
     Dosage: 10 MG, 1X/DAY (ONE TABLET AT BEDTIME)
     Dates: start: 201504
  2. CHANTIX [Suspect]
     Active Substance: VARENICLINE TARTRATE
     Indication: SMOKING CESSATION THERAPY
     Dosage: UNK
     Dates: end: 201608
  3. GABAPENTIN. [Concomitant]
     Active Substance: GABAPENTIN
     Indication: INFLAMMATION
     Dosage: 800 MG, 3X/DAY (400MG, 2 CAPSULES BY MOUTH, 3 TIMES A DAY)
     Route: 048
     Dates: start: 201401
  4. OXYCODONE [Concomitant]
     Active Substance: OXYCODONE
     Indication: INTERVERTEBRAL DISC DEGENERATION
  5. ACICLOVIR [Concomitant]
     Active Substance: ACYCLOVIR
     Indication: GENITAL HERPES
     Dosage: 400 MG, 2X/DAY (200MG, 2 CAPSULES TWICE A DAY)
     Route: 048
  6. KLOR-CON [Concomitant]
     Active Substance: POTASSIUM CHLORIDE
     Indication: BLOOD POTASSIUM DECREASED
     Dosage: 10 MEQ, 1X/DAY (10MEQ ER, ONE TABLET)
  7. CLONAZEPAM. [Concomitant]
     Active Substance: CLONAZEPAM
     Indication: NERVOUSNESS
     Dosage: 1 MG, 3X/DAY
  8. MELOXICAM. [Concomitant]
     Active Substance: MELOXICAM
     Indication: SEIZURE
     Dosage: 15 MG, 1X/DAY
  9. MORPHINE SULFATE. [Concomitant]
     Active Substance: MORPHINE SULFATE
     Indication: PAIN
     Dosage: 15 MG, 3X/DAY
     Dates: start: 2015
  10. BENADRYL [Concomitant]
     Active Substance: DIPHENHYDRAMINE HYDROCHLORIDE
     Indication: ALLERGY TO ANIMAL
     Dosage: 50 MG, 4X/DAY (25MG, 2 TABLETS, 4 TIMES A DAY)
  11. OXYCODONE [Concomitant]
     Active Substance: OXYCODONE
     Indication: SCOLIOSIS
     Dosage: 10 MG, 3X/DAY

REACTIONS (2)
  - Dyspnoea [Not Recovered/Not Resolved]
  - Condition aggravated [Not Recovered/Not Resolved]

NARRATIVE: CASE EVENT DATE: 2016
